FAERS Safety Report 18825238 (Version 1)
Quarter: 2021Q1

REPORT INFORMATION
  Report Type: Spontaneous
  Country: US (occurrence: US)
  Receive Date: 20210201
  Receipt Date: 20210201
  Transmission Date: 20210419
  Serious: No
  Sender: FDA-Public Use
  Company Number: US-ABBVIE-20K-163-3341578-00

PATIENT
  Age: 26 Year

DRUGS (2)
  1. BENADRYL [Concomitant]
     Active Substance: DIPHENHYDRAMINE HYDROCHLORIDE
     Indication: SEASONAL ALLERGY
  2. HUMIRA [Suspect]
     Active Substance: ADALIMUMAB
     Indication: PSORIASIS
     Route: 058
     Dates: start: 2017

REACTIONS (9)
  - Sinus congestion [Recovered/Resolved]
  - Pain [Recovered/Resolved]
  - Sneezing [Recovered/Resolved]
  - Chills [Recovered/Resolved]
  - Coronavirus infection [Recovered/Resolved]
  - Rhinorrhoea [Recovered/Resolved]
  - Hyperhidrosis [Recovered/Resolved]
  - Productive cough [Recovered/Resolved]
  - Headache [Recovered/Resolved]

NARRATIVE: CASE EVENT DATE: 20200317
